FAERS Safety Report 4282286-X (Version None)
Quarter: 2004Q1

REPORT INFORMATION
  Report Type: 
  Country: None (occurrence: None)
  Receive Date: 20040108
  Receipt Date: 20030722
  Transmission Date: 20041129
  Serious: Yes (Life-Threatening, Other)
  Sender: FDA-Public Use
  Company Number: HQWYE150923JUL03

PATIENT
  Sex: Female

DRUGS (2)
  1. PREMPHASE (CONJUGATED ESTROGENS) [Suspect]
     Dosage: 0.625MG/5 MG DAILY, ORAL
     Route: 048
     Dates: end: 19990101
  2. ESTRACE [Suspect]
     Dates: end: 19990101

REACTIONS (1)
  - BREAST CANCER FEMALE [None]
